FAERS Safety Report 9241839 (Version 2)
Quarter: 2013Q2

REPORT INFORMATION
  Report Type: Report from Study
  Country: US (occurrence: US)
  Receive Date: 20130419
  Receipt Date: 20130507
  Transmission Date: 20140414
  Serious: Yes (Hospitalization)
  Sender: FDA-Public Use
  Company Number: PHEH2013US008617

PATIENT
  Age: 41 Year
  Sex: Male

DRUGS (8)
  1. GILENYA [Suspect]
     Indication: MULTIPLE SCLEROSIS
     Dosage: 0.5 MG, QD
     Route: 048
     Dates: start: 20130412, end: 20130412
  2. DIOVAN HCT [Concomitant]
     Dosage: 1 DF, QD
     Route: 048
  3. NEURONTIN [Concomitant]
     Dosage: 2 DF, TID
     Route: 048
     Dates: start: 20130211
  4. LIORESAL [Concomitant]
     Dosage: 1 DF, QID
     Route: 048
     Dates: start: 20121031
  5. VITAMIN B12 [Concomitant]
     Dosage: 1000 UG, UNK
     Route: 058
  6. GLATIRAMER ACETATE [Concomitant]
     Dosage: 1 ML, QD
     Route: 058
     Dates: start: 20121031, end: 20130413
  7. MULTI VITAMIN WITH FLUORIDE [Concomitant]
     Dosage: 1 DF, QD
     Route: 048
  8. MAGNESIUM [Concomitant]

REACTIONS (8)
  - Bradycardia [Recovering/Resolving]
  - Feeling abnormal [Unknown]
  - Malaise [Unknown]
  - Flushing [Unknown]
  - Nephrolithiasis [Unknown]
  - Abdominal pain [Unknown]
  - Hepatic steatosis [Unknown]
  - Drug intolerance [Unknown]
